FAERS Safety Report 24102910 (Version 1)
Quarter: 2024Q3

REPORT INFORMATION
  Report Type: Spontaneous
  Country: US (occurrence: US)
  Receive Date: 20240717
  Receipt Date: 20240717
  Transmission Date: 20241017
  Serious: No
  Sender: NOVO NORDISK
  Company Number: US-NOVOPROD-1157699

PATIENT
  Sex: Female

DRUGS (1)
  1. OZEMPIC [Suspect]
     Active Substance: SEMAGLUTIDE
     Indication: Product used for unknown indication
     Dosage: 0.25/0.50 MG
     Route: 058

REACTIONS (10)
  - Abdominal distension [Recovered/Resolved]
  - Diarrhoea [Unknown]
  - Nausea [Unknown]
  - Fatigue [Unknown]
  - Constipation [Recovered/Resolved]
  - Injury associated with device [Unknown]
  - Product packaging quantity issue [Not Recovered/Not Resolved]
  - Wrong technique in product usage process [Unknown]
  - Incorrect dose administered [Unknown]
  - Drug titration error [Not Recovered/Not Resolved]

NARRATIVE: CASE EVENT DATE: 20231201
